FAERS Safety Report 8928462 (Version 2)
Quarter: 2012Q4

REPORT INFORMATION
  Report Type: 
  Country: US (occurrence: US)
  Receive Date: 20121127
  Receipt Date: 20121217
  Transmission Date: 20130627
  Serious: Yes (Death)
  Sender: FDA-Public Use
  Company Number: US-GILEAD-2012-0065114

PATIENT
  Sex: Female

DRUGS (2)
  1. LETAIRIS [Suspect]
     Indication: SCLERODERMA
     Dosage: 10 mg, QD
     Route: 048
     Dates: start: 20120525, end: 20121119
  2. LETAIRIS [Suspect]
     Indication: PULMONARY HYPERTENSION

REACTIONS (1)
  - Pulseless electrical activity [Fatal]
